FAERS Safety Report 25428099 (Version 1)
Quarter: 2025Q2

REPORT INFORMATION
  Report Type: Spontaneous
  Country: US (occurrence: US)
  Receive Date: 20250612
  Receipt Date: 20250612
  Transmission Date: 20250717
  Serious: Yes (Hospitalization)
  Sender: ROCHE
  Company Number: US-ROCHE-10000306442

PATIENT
  Sex: Female
  Weight: 42 kg

DRUGS (3)
  1. ACTEMRA [Suspect]
     Active Substance: TOCILIZUMAB
     Indication: Scleroderma
     Dosage: ONE TIME DOSE
     Route: 042
     Dates: start: 20240325, end: 20240325
  2. IMURAN [Concomitant]
     Active Substance: AZATHIOPRINE
  3. REMICADE [Concomitant]
     Active Substance: INFLIXIMAB
     Indication: Scleroderma

REACTIONS (12)
  - Sleep disorder [Recovered/Resolved]
  - Nausea [Unknown]
  - Malaise [Unknown]
  - Fatigue [Unknown]
  - Muscular weakness [Unknown]
  - Dysphonia [Unknown]
  - Strabismus [Unknown]
  - Weight decreased [Unknown]
  - Autoimmune disorder [Not Recovered/Not Resolved]
  - Product use issue [Unknown]
  - Cerebrovascular accident [Not Recovered/Not Resolved]
  - Ataxia [Recovered/Resolved with Sequelae]

NARRATIVE: CASE EVENT DATE: 20240325
